FAERS Safety Report 21991087 (Version 1)
Quarter: 2023Q1

REPORT INFORMATION
  Report Type: Spontaneous
  Country: US (occurrence: None)
  Receive Date: 20230213
  Receipt Date: 20230213
  Transmission Date: 20230417
  Serious: Yes (Death)
  Sender: FDA-Public Use
  Company Number: None

PATIENT
  Age: 40 Year
  Sex: Male
  Weight: 74.25 kg

DRUGS (2)
  1. LISINOPRIL [Suspect]
     Active Substance: LISINOPRIL
     Indication: Hypertension
     Dosage: FREQUENCY : DAILY;?
     Route: 048
  2. LISINOPRIL [Concomitant]
     Active Substance: LISINOPRIL

REACTIONS (7)
  - Angioedema [None]
  - Encephalopathy [None]
  - Thrombocytopenia [None]
  - Ischaemic hepatitis [None]
  - Brain injury [None]
  - Acute respiratory failure [None]
  - Cardiac arrest [None]

NARRATIVE: CASE EVENT DATE: 20230130
